FAERS Safety Report 5467600-1 (Version None)
Quarter: 2007Q3

REPORT INFORMATION
  Report Type: 
  Country: None (occurrence: None)
  Receive Date: 20070921
  Receipt Date: 20070906
  Transmission Date: 20080115
  Serious: Yes (Other)
  Sender: FDA-Public Use
  Company Number: DSA_30520_2007

PATIENT
  Sex: Male

DRUGS (12)
  1. DILTIAZEM [Suspect]
     Indication: HYPERTENSION
  2. LIPITOR [Suspect]
     Indication: BLOOD CHOLESTEROL INCREASED
     Dates: start: 20020101
  3. NORVASC [Suspect]
     Indication: HYPERTENSION
  4. NORVASC [Suspect]
     Indication: HYPERTENSION
  5. NORVASC [Suspect]
     Indication: HYPERTENSION
  6. NORVASC [Suspect]
     Indication: HYPERTENSION
     Dates: start: 20040101
  7. ''' [Suspect]
  8. ZOLOFT [Suspect]
     Indication: STRESS
     Dates: start: 20070301
  9. ASPIRIN [Concomitant]
  10. VITAMIN E [Concomitant]
  11. NITROGLYCERIN [Concomitant]
  12. FOLIC ACID [Concomitant]

REACTIONS (16)
  - BLOOD PRESSURE ABNORMAL [None]
  - CARDIAC DISORDER [None]
  - DECREASED APPETITE [None]
  - DYSPNOEA [None]
  - FATIGUE [None]
  - HEART RATE INCREASED [None]
  - LIBIDO DECREASED [None]
  - LOSS OF EMPLOYMENT [None]
  - MENTAL DISORDER [None]
  - OEDEMA PERIPHERAL [None]
  - SEXUAL DYSFUNCTION [None]
  - STRESS [None]
  - TREATMENT NONCOMPLIANCE [None]
  - VENTRICULAR EXTRASYSTOLES [None]
  - WEIGHT DECREASED [None]
  - WRONG TECHNIQUE IN DRUG USAGE PROCESS [None]
